FAERS Safety Report 8046936-4 (Version None)
Quarter: 2012Q1

REPORT INFORMATION
  Report Type: 
  Country: None (occurrence: None)
  Receive Date: 20120116
  Receipt Date: 20120109
  Transmission Date: 20120608
  Serious: Yes (Death, Hospitalization)
  Sender: FDA-Public Use
  Company Number: CH-ELI_LILLY_AND_COMPANY-CH201112005060

PATIENT
  Age: 71 Year
  Sex: Female

DRUGS (12)
  1. MORPHINE [Concomitant]
     Dosage: 30 DF, TID
  2. BEVACIZUMAB [Suspect]
     Indication: NON-SMALL CELL LUNG CANCER
     Dosage: 350 MG, UNK
     Route: 042
     Dates: start: 20111111
  3. ACETAMINOPHEN [Concomitant]
     Dosage: 4 G, UNK
     Route: 048
  4. MORPHINE [Concomitant]
     Dosage: 50 DF, TID
  5. PERINDOPRIL [Concomitant]
     Dosage: UNK
     Route: 048
  6. LEVOTHYROXINE SODIUM [Concomitant]
     Dosage: 1 MG, UNK
     Route: 048
  7. PEMETREXED [Suspect]
     Indication: NON-SMALL CELL LUNG CANCER
     Dosage: 750 MG, UNK
     Route: 042
     Dates: start: 20111111
  8. CISPLATIN [Suspect]
     Indication: NON-SMALL CELL LUNG CANCER
     Dosage: 112 MG, UNK
     Route: 042
     Dates: start: 20111111
  9. AMLODIPINE BESYLATE [Concomitant]
     Dosage: UNK
     Route: 048
  10. FOLIC ACID [Concomitant]
  11. VITAMIN B-12 [Concomitant]
  12. DEXAMETHASONE [Concomitant]

REACTIONS (4)
  - FATIGUE [None]
  - NEOPLASM PROGRESSION [None]
  - NEUTROPHIL COUNT DECREASED [None]
  - PLATELET COUNT DECREASED [None]
